FAERS Safety Report 8264814-2 (Version None)
Quarter: 2012Q2

REPORT INFORMATION
  Report Type: 
  Country: None (occurrence: None)
  Receive Date: 20120404
  Receipt Date: 20120326
  Transmission Date: 20120825
  Serious: Yes (Hospitalization)
  Sender: FDA-Public Use
  Company Number: DSA_55801_2012

PATIENT
  Age: 80 Year
  Sex: Male
  Weight: 95.709 kg

DRUGS (3)
  1. XENAZINE [Suspect]
     Indication: EXTRAPYRAMIDAL DISORDER
     Dosage: (62.5 MG, 25 MG IN THE MORNING, 12.5 MG AT 1 PM, AND 25MG IN THE EVENING ORAL)
     Route: 048
     Dates: start: 20100101
  2. AMBIEN [Concomitant]
  3. ATIVAN [Concomitant]

REACTIONS (10)
  - CANDIDIASIS [None]
  - PULMONARY FIBROSIS [None]
  - MOOD SWINGS [None]
  - FATIGUE [None]
  - INSOMNIA [None]
  - DRUG DOSE OMISSION [None]
  - ANAEMIA [None]
  - ANXIETY [None]
  - PNEUMONIA [None]
  - ASTHENIA [None]
